FAERS Safety Report 24632563 (Version 1)
Quarter: 2024Q4

REPORT INFORMATION
  Report Type: Spontaneous
  Country: HU (occurrence: HU)
  Receive Date: 20241118
  Receipt Date: 20241118
  Transmission Date: 20250115
  Serious: Yes (Other)
  Sender: NOVARTIS
  Company Number: HU-002147023-NVSC2024HU219273

PATIENT
  Age: 61 Year
  Sex: Female

DRUGS (2)
  1. ASCIMINIB [Suspect]
     Active Substance: ASCIMINIB
     Indication: Chronic myeloid leukaemia
     Dosage: 40 MG (2X DAILY)
     Route: 065
     Dates: start: 202305
  2. HYDROXYUREA [Concomitant]
     Active Substance: HYDROXYUREA
     Indication: Chronic myeloid leukaemia
     Dosage: UNK
     Route: 065
     Dates: start: 2001

REACTIONS (6)
  - Platelet count increased [Unknown]
  - Hepatic cirrhosis [Unknown]
  - Philadelphia chromosome positive [Unknown]
  - Hyperbilirubinaemia [Recovering/Resolving]
  - Ascites [Recovering/Resolving]
  - Drug ineffective [Unknown]

NARRATIVE: CASE EVENT DATE: 20240101
